FAERS Safety Report 22004906 (Version 3)
Quarter: 2023Q2

REPORT INFORMATION
  Report Type: Spontaneous
  Country: US (occurrence: US)
  Receive Date: 20230217
  Receipt Date: 20230626
  Transmission Date: 20230721
  Serious: Yes (Hospitalization)
  Sender: FDA-Public Use
  Company Number: US-BoehringerIngelheim-2023-BI-219561

PATIENT
  Age: 83 Year
  Sex: Male

DRUGS (3)
  1. COMBIVENT RESPIMAT [Suspect]
     Active Substance: ALBUTEROL SULFATE\IPRATROPIUM BROMIDE
     Dosage: 1 PUUF 4 TIMES DAILY (MAX 6 PUFFS/24 HRS)
     Dates: start: 20200320
  2. COMBIVENT RESPIMAT [Suspect]
     Active Substance: ALBUTEROL SULFATE\IPRATROPIUM BROMIDE
     Indication: Chronic obstructive pulmonary disease
     Dosage: 1 PUFF INHALED AS NEEDED
     Route: 055
     Dates: start: 2022
  3. Ipratropium Bromide Albuterol Sulfate Inhalation Solution Nebulizer [Concomitant]
     Indication: Product used for unknown indication
     Route: 055

REACTIONS (4)
  - Dyspnoea [Unknown]
  - Dyspnoea [Not Recovered/Not Resolved]
  - Nasopharyngitis [Unknown]
  - Intentional overdose [Unknown]

NARRATIVE: CASE EVENT DATE: 20220601
